FAERS Safety Report 10386073 (Version 3)
Quarter: 2014Q3

REPORT INFORMATION
  Report Type: Not Available
  Country: CO (occurrence: CO)
  Receive Date: 20140814
  Receipt Date: 20140829
  Transmission Date: 20150326
  Serious: Yes (Death)
  Sender: FDA-Public Use
  Company Number: CO-ONYX-2014-1214

PATIENT
  Age: 53 Year
  Sex: Male
  Weight: 93 kg

DRUGS (1)
  1. KYPROLIS [Suspect]
     Active Substance: CARFILZOMIB
     Indication: PLASMA CELL MYELOMA
     Route: 042
     Dates: end: 2014

REACTIONS (5)
  - Visual acuity reduced [Unknown]
  - Disease progression [Unknown]
  - Myocardial infarction [Fatal]
  - Dizziness [Unknown]
  - Papilloedema [Unknown]

NARRATIVE: CASE EVENT DATE: 20140810
